FAERS Safety Report 17578443 (Version 1)
Quarter: 2020Q1

REPORT INFORMATION
  Report Type: Report from Study
  Country: GB (occurrence: GB)
  Receive Date: 20200324
  Receipt Date: 20200324
  Transmission Date: 20200409
  Serious: Yes (Hospitalization)
  Sender: FDA-Public Use
  Company Number: GB-SUN PHARMACEUTICAL INDUSTRIES LTD-2020R1-241338

PATIENT
  Age: 27 Year
  Sex: Male

DRUGS (1)
  1. COCODAMOL [Suspect]
     Active Substance: ACETAMINOPHEN\CODEINE PHOSPHATE
     Indication: SUBSTANCE USE
     Dosage: 8/500 TABLETS (8MG CODEINE AND 500MG PARACETAMOL  PER TABLET)
     Route: 048

REACTIONS (2)
  - Panic attack [Unknown]
  - Overdose [Unknown]
